FAERS Safety Report 4785484-1 (Version None)
Quarter: 2005Q3

REPORT INFORMATION
  Report Type: 
  Country: None (occurrence: None)
  Receive Date: 20050929
  Receipt Date: 20050915
  Transmission Date: 20060218
  Serious: Yes (Hospitalization)
  Sender: FDA-Public Use
  Company Number: 2005P1000432

PATIENT
  Age: 77 Year
  Sex: Male

DRUGS (13)
  1. RETEPLASE (RETEPLASE) [Suspect]
     Indication: ACUTE MYOCARDIAL INFARCTION
     Dosage: 5 IU; X2; IV
     Route: 042
     Dates: start: 20041119, end: 20041119
  2. ABCIXIMAB (ABCIXIMAB) [Suspect]
     Indication: ACUTE MYOCARDIAL INFARCTION
     Dosage: IV
     Route: 042
     Dates: start: 20041119
  3. ASPIRIN [Concomitant]
  4. TICLOPIDINE HCL [Concomitant]
  5. CARVEDILOL [Concomitant]
  6. ISOSORBIDE MONONITRATE [Concomitant]
  7. RAMIPRIL [Concomitant]
  8. FUROSEMIDE [Concomitant]
  9. WARFARIN [Concomitant]
  10. ENALAPRIL [Concomitant]
  11. AMIODARONE [Concomitant]
  12. NORFLOXACIN [Concomitant]
  13. NYSTATIN [Concomitant]

REACTIONS (2)
  - HYPOTENSION [None]
  - ISCHAEMIC STROKE [None]
